FAERS Safety Report 8357468-8 (Version None)
Quarter: 2012Q2

REPORT INFORMATION
  Report Type: 
  Country: None (occurrence: None)
  Receive Date: 20120514
  Receipt Date: 20120507
  Transmission Date: 20120825
  Serious: Yes (Disabling)
  Sender: FDA-Public Use
  Company Number: US-CELGENEUS-163-21880-12042229

PATIENT
  Sex: Male

DRUGS (4)
  1. PLAVIX [Concomitant]
     Route: 065
  2. GLIPIZIDE [Concomitant]
     Route: 065
  3. ALLOPURINOL [Concomitant]
     Route: 065
  4. REVLIMID [Suspect]
     Indication: AMYLOIDOSIS
     Dosage: 15 MILLIGRAM
     Route: 048
     Dates: start: 20110801

REACTIONS (1)
  - DRUG INTOLERANCE [None]
